FAERS Safety Report 6532878-X (Version None)
Quarter: 2010Q1

REPORT INFORMATION
  Report Type: 
  Country: None (occurrence: None)
  Receive Date: 20100111
  Receipt Date: 20100107
  Transmission Date: 20100710
  Serious: Yes (Death, Hospitalization)
  Sender: FDA-Public Use
  Company Number: FR-ELI_LILLY_AND_COMPANY-FR201001000872

PATIENT
  Age: 57 Year
  Sex: Female

DRUGS (9)
  1. GEMZAR [Suspect]
     Indication: PANCREATIC CARCINOMA METASTATIC
     Dosage: 800 MG/M2, WEEKLY (1/W)
     Route: 042
     Dates: start: 20091103, end: 20091110
  2. METHYLPREDNISOLONE [Concomitant]
  3. PRIMPERAN                               /SCH/ [Concomitant]
  4. ARIXTRA [Concomitant]
  5. OCTALBINE [Concomitant]
  6. ALDACTONE [Concomitant]
     Route: 048
  7. FORLAX [Concomitant]
  8. FUROSEMIDE [Concomitant]
  9. PERFALGAN [Concomitant]

REACTIONS (4)
  - DEATH [None]
  - FEBRILE BONE MARROW APLASIA [None]
  - OEDEMA PERIPHERAL [None]
  - THROMBOSIS [None]
